FAERS Safety Report 16025899 (Version 2)
Quarter: 2019Q2

REPORT INFORMATION
  Report Type: Spontaneous
  Country: AU (occurrence: AU)
  Receive Date: 20190302
  Receipt Date: 20190419
  Transmission Date: 20190711
  Serious: Yes (Life-Threatening, Hospitalization, Other)
  Sender: FDA-Public Use
  Company Number: AU-AMGEN-AUSSP2019030497

PATIENT
  Age: 50 Year
  Sex: Male

DRUGS (2)
  1. TERIPARATIDE [Concomitant]
     Active Substance: TERIPARATIDE
     Dosage: 20 MUG, QD
     Route: 058
     Dates: start: 201707
  2. PROLIA [Suspect]
     Active Substance: DENOSUMAB
     Indication: OSTEOPOROSIS
     Dosage: UNK
     Route: 065

REACTIONS (8)
  - Arthritis bacterial [Recovered/Resolved]
  - Inflammatory marker increased [Unknown]
  - Nephrolithiasis [Unknown]
  - Abscess [Unknown]
  - Off label use [Unknown]
  - Bone density abnormal [Unknown]
  - Decubitus ulcer [Unknown]
  - Tendon calcification [Unknown]

NARRATIVE: CASE EVENT DATE: 20170802
